FAERS Safety Report 17452972 (Version 1)
Quarter: 2020Q1

REPORT INFORMATION
  Report Type: Spontaneous
  Country: US (occurrence: US)
  Receive Date: 20200224
  Receipt Date: 20200224
  Transmission Date: 20200409
  Serious: No
  Sender: FDA-Public Use
  Company Number: US-CELGENEUS-USA-20200206972

PATIENT
  Sex: Female

DRUGS (3)
  1. POMALYST [Suspect]
     Active Substance: POMALIDOMIDE
     Indication: OFF LABEL USE
  2. POMALYST [Suspect]
     Active Substance: POMALIDOMIDE
     Indication: PLASMA CELL LEUKAEMIA
  3. POMALYST [Suspect]
     Active Substance: POMALIDOMIDE
     Indication: LEUKAEMIA
     Dosage: 4 MILLIGRAM
     Route: 048
     Dates: start: 201909

REACTIONS (1)
  - Adverse drug reaction [Unknown]
